FAERS Safety Report 16730070 (Version 1)
Quarter: 2019Q3

REPORT INFORMATION
  Report Type: Spontaneous
  Country: ES (occurrence: ES)
  Receive Date: 20190822
  Receipt Date: 20190822
  Transmission Date: 20191005
  Serious: Yes (Hospitalization)
  Sender: FDA-Public Use
  Company Number: ES-PACIRA-201400035

PATIENT
  Age: 27 Year
  Sex: Male

DRUGS (2)
  1. FLEBOGAMMA DIF [Suspect]
     Active Substance: HUMAN IMMUNOGLOBULIN G
     Indication: PARVOVIRUS B19 INFECTION
     Dosage: DOSE AND FREQUENCY UNKNOWN, FREQUENCY : UNK
     Route: 042
     Dates: start: 20140625, end: 20140626
  2. DEPOCYT [Suspect]
     Active Substance: CYTARABINE
     Indication: ACUTE LEUKAEMIA
     Dosage: 50 MG, FREQUENCY UNKNOWN, FREQUENCY : UNK
     Route: 037
     Dates: end: 20140521

REACTIONS (1)
  - Cauda equina syndrome [Recovered/Resolved]
